FAERS Safety Report 8322247-4 (Version None)
Quarter: 2012Q2

REPORT INFORMATION
  Report Type: 
  Country: None (occurrence: None)
  Receive Date: 20120430
  Receipt Date: 20120419
  Transmission Date: 20120825
  Serious: Yes (Hospitalization)
  Sender: FDA-Public Use
  Company Number: CA-JNJFOC-20120409009

PATIENT
  Sex: Male
  Weight: 66 kg

DRUGS (7)
  1. NOZINAN [Concomitant]
     Dosage: EVERY EVENING
     Route: 065
  2. METHOTREXATE [Concomitant]
     Route: 058
  3. CLONAZEPAM [Concomitant]
     Route: 065
  4. NABILONE [Concomitant]
     Route: 065
  5. REMICADE [Suspect]
     Indication: CROHN'S DISEASE
     Route: 042
     Dates: start: 20030903
  6. ELAVIL [Concomitant]
     Route: 065
  7. CODEINE [Concomitant]
     Route: 065

REACTIONS (7)
  - LOSS OF CONSCIOUSNESS [None]
  - DIZZINESS [None]
  - CONFUSIONAL STATE [None]
  - DEHYDRATION [None]
  - HYPOAESTHESIA [None]
  - MUSCULAR WEAKNESS [None]
  - ASTHENIA [None]
